FAERS Safety Report 7109938-8 (Version None)
Quarter: 2010Q4

REPORT INFORMATION
  Report Type: 
  Country: None (occurrence: None)
  Receive Date: 20101112
  Receipt Date: 20101027
  Transmission Date: 20110411
  Serious: Yes (Hospitalization)
  Sender: FDA-Public Use
  Company Number: 1-20514598

PATIENT
  Age: 62 Year
  Sex: Female
  Weight: 65.7716 kg

DRUGS (3)
  1. QUININE SULFATE [Suspect]
     Indication: MUSCLE SPASMS
     Dosage: 260 MG, AS NEEDED, ORAL
     Route: 048
     Dates: start: 20050828, end: 20070521
  2. QUININE 250 MG (IVAX/TEVA) [Suspect]
     Indication: MUSCLE SPASMS
     Dosage: 260 AS NEEDED, ORAL
     Route: 048
     Dates: start: 20030823, end: 20061028
  3. QUININE (OTC) (HYLAND'S, INC.) [Suspect]
     Dosage: AS NEEDED, ORAL
     Route: 048
     Dates: start: 20080110, end: 20081010

REACTIONS (10)
  - ANXIETY [None]
  - ARTHRITIS [None]
  - CHRONIC OBSTRUCTIVE PULMONARY DISEASE [None]
  - DRUG HYPERSENSITIVITY [None]
  - EMOTIONAL DISORDER [None]
  - FEAR [None]
  - MENTAL DISORDER [None]
  - PAIN [None]
  - SKIN DISORDER [None]
  - THROMBOCYTOPENIA [None]
